FAERS Safety Report 9270428 (Version 1)
Quarter: 2013Q2

REPORT INFORMATION
  Report Type: Spontaneous
  Country: JP (occurrence: JP)
  Receive Date: 20130503
  Receipt Date: 20130503
  Transmission Date: 20140414
  Serious: Yes (Other)
  Sender: FDA-Public Use
  Company Number: JP-BAYER-2013-036551

PATIENT
  Age: 12 Year
  Sex: Female

DRUGS (1)
  1. NEXAVAR [Suspect]
     Indication: GORHAM^S DISEASE
     Dosage: UNK
     Route: 048

REACTIONS (5)
  - Pyrexia [None]
  - Tumour haemorrhage [None]
  - Chylothorax [None]
  - Hypertension [None]
  - Off label use [None]
